FAERS Safety Report 7746441-6 (Version None)
Quarter: 2011Q3

REPORT INFORMATION
  Report Type: 
  Country: None (occurrence: None)
  Receive Date: 20110913
  Receipt Date: 20110908
  Transmission Date: 20111222
  Serious: No
  Sender: FDA-Public Use
  Company Number: US-PFIZER INC-2011212271

PATIENT
  Age: 42 Year
  Sex: Female

DRUGS (3)
  1. ZITHROMAX [Suspect]
     Dosage: UNK
  2. ALBUTEROL SULFATE AUTOHALER [Concomitant]
     Dosage: UNK
  3. FORMOTEROL FUMARATE/MOMETASONE FUROATE [Interacting]
     Indication: ASTHMA
     Dosage: 200 /5- 2 DOSES TWICE A DAY
     Dates: start: 20110801, end: 20110801

REACTIONS (5)
  - PALPITATIONS [None]
  - HEADACHE [None]
  - DIZZINESS [None]
  - ASTHMA [None]
  - DRUG INTERACTION [None]
